FAERS Safety Report 21450020 (Version 6)
Quarter: 2024Q1

REPORT INFORMATION
  Report Type: Report from Study
  Country: US (occurrence: US)
  Receive Date: 20221013
  Receipt Date: 20240108
  Transmission Date: 20240410
  Serious: Yes (Hospitalization, Other)
  Sender: FDA-Public Use
  Company Number: US-ABBVIE-4152401

PATIENT
  Sex: Female
  Weight: 73 kg

DRUGS (4)
  1. RINVOQ [Suspect]
     Active Substance: UPADACITINIB
     Indication: Rheumatoid arthritis
     Dosage: FORM STRENGTH 15 MG, EXTENDED RELEASE
     Route: 048
     Dates: start: 20220816
  2. RINVOQ [Suspect]
     Active Substance: UPADACITINIB
     Indication: Rheumatoid arthritis
     Route: 048
  3. RINVOQ [Suspect]
     Active Substance: UPADACITINIB
     Indication: Rheumatoid arthritis
     Dosage: FORM STRENGTH 15 MG, EXTENDED RELEASE
     Route: 048
     Dates: end: 202203
  4. CEPHALEXIN [Suspect]
     Active Substance: CEPHALEXIN
     Indication: Staphylococcal infection
     Route: 065
     Dates: start: 20230609

REACTIONS (14)
  - Spinal operation [Unknown]
  - Spinal implantation [Unknown]
  - Hyperhidrosis [Unknown]
  - Staphylococcal infection [Unknown]
  - Viral infection [Unknown]
  - Fall [Unknown]
  - Loss of consciousness [Unknown]
  - Staphylococcal infection [Unknown]
  - Pain [Unknown]
  - Multiple sclerosis [Unknown]
  - Rheumatoid arthritis [Unknown]
  - Blood potassium decreased [Unknown]
  - Spinal operation [Unknown]
  - Spinal operation [Unknown]

NARRATIVE: CASE EVENT DATE: 20220101
